FAERS Safety Report 8488773-2 (Version None)
Quarter: 2012Q3

REPORT INFORMATION
  Report Type: 
  Country: None (occurrence: None)
  Receive Date: 20120705
  Receipt Date: 20120629
  Transmission Date: 20120928
  Serious: Yes (Other)
  Sender: FDA-Public Use
  Company Number: GB-ROCHE-1083986

PATIENT

DRUGS (1)
  1. PEGASYS [Suspect]
     Indication: PRODUCT USED FOR UNKNOWN INDICATION

REACTIONS (2)
  - MALAISE [None]
  - EXPIRED DRUG ADMINISTERED [None]
